FAERS Safety Report 21747817 (Version 1)
Quarter: 2022Q4

REPORT INFORMATION
  Report Type: Report from Study
  Country: CN (occurrence: CN)
  Receive Date: 20221219
  Receipt Date: 20221219
  Transmission Date: 20230113
  Serious: Yes (Other)
  Sender: FDA-Public Use
  Company Number: CN-PFIZER INC-PV202200119246

PATIENT
  Age: 40 Year
  Sex: Female

DRUGS (10)
  1. METHYLPREDNISOLONE SODIUM SUCCINATE [Suspect]
     Active Substance: METHYLPREDNISOLONE SODIUM SUCCINATE
     Indication: Systemic lupus erythematosus
     Dosage: 80 MG, DAILY
     Route: 042
     Dates: start: 202012, end: 202101
  2. METHYLPREDNISOLONE SODIUM SUCCINATE [Suspect]
     Active Substance: METHYLPREDNISOLONE SODIUM SUCCINATE
     Indication: Disseminated aspergillosis
     Dosage: 40 MG (PERIBULBAR INJECTION)
     Route: 047
  3. METHYLPREDNISOLONE SODIUM SUCCINATE [Suspect]
     Active Substance: METHYLPREDNISOLONE SODIUM SUCCINATE
     Indication: Retinitis
     Dosage: 20 MG, 1X/DAY
     Route: 041
  4. METHYLPREDNISOLONE SODIUM SUCCINATE [Suspect]
     Active Substance: METHYLPREDNISOLONE SODIUM SUCCINATE
     Dosage: TAPERING DOSE
  5. DEXAMETHASONE [Suspect]
     Active Substance: DEXAMETHASONE
     Indication: Systemic lupus erythematosus
     Dosage: 10 MG, 3X/DAY
     Route: 042
  6. PREDNISOLONE [Concomitant]
     Active Substance: PREDNISOLONE
     Indication: Systemic lupus erythematosus
     Dosage: GRADUALLY REDUCED TO 15 MG/DAY
     Dates: start: 202102, end: 202104
  7. OLANZAPINE [Concomitant]
     Active Substance: OLANZAPINE
     Dosage: 5 MG, 1X/DAY (QN)
     Dates: start: 202012, end: 202101
  8. OLANZAPINE [Concomitant]
     Active Substance: OLANZAPINE
     Dosage: 5 MG, 1X/DAY (QN)
     Dates: start: 202102, end: 202104
  9. RITUXIMAB [Concomitant]
     Active Substance: RITUXIMAB
     Indication: Systemic lupus erythematosus
     Dosage: 100 MG, 2X/DAY (DAY 0)
     Dates: start: 202012
  10. RITUXIMAB [Concomitant]
     Active Substance: RITUXIMAB
     Dosage: 100 MG, 2X/DAY (DAY 14)
     Dates: start: 202012

REACTIONS (8)
  - Contraindicated product prescribed [Unknown]
  - Contraindicated product administered [Unknown]
  - Disseminated aspergillosis [Unknown]
  - Cerebral aspergillosis [Unknown]
  - Bronchopulmonary aspergillosis [Unknown]
  - Aspergillus infection [Unknown]
  - Chorioretinitis [Unknown]
  - Blindness [Unknown]
